FAERS Safety Report 8505094-X (Version None)
Quarter: 2012Q3

REPORT INFORMATION
  Report Type: 
  Country: None (occurrence: None)
  Receive Date: 20120712
  Receipt Date: 20120702
  Transmission Date: 20120928
  Serious: Yes (Other)
  Sender: FDA-Public Use
  Company Number: JP-JNJFOC-20120702284

PATIENT
  Sex: Female
  Weight: 72 kg

DRUGS (11)
  1. REMICADE [Suspect]
     Dosage: THIRD DOSE
     Route: 042
     Dates: start: 20120405
  2. LETRAC [Concomitant]
     Route: 048
     Dates: start: 20030101
  3. VITAMIN B12 [Concomitant]
     Route: 048
     Dates: start: 20030101
  4. REMICADE [Suspect]
     Indication: RHEUMATOID ARTHRITIS
     Route: 042
     Dates: start: 20120308
  5. AZULFIDINE [Concomitant]
     Route: 048
     Dates: start: 20030101
  6. PREDNISOLONE [Concomitant]
     Route: 048
     Dates: start: 20030101
  7. REMICADE [Suspect]
     Indication: ANKYLOSING SPONDYLITIS
     Dosage: FIRST DOSE
     Route: 042
     Dates: start: 20120223
  8. EDIROL [Concomitant]
     Route: 048
     Dates: start: 20120401
  9. REMICADE [Suspect]
     Route: 042
     Dates: start: 20120308
  10. REMICADE [Suspect]
     Dosage: FIRST DOSE
     Route: 042
     Dates: start: 20120223
  11. REMICADE [Suspect]
     Dosage: THIRD DOSE
     Route: 042
     Dates: start: 20120405

REACTIONS (7)
  - DYSSTASIA [None]
  - DEMYELINATION [None]
  - SENSORY DISTURBANCE [None]
  - GAIT DISTURBANCE [None]
  - DIZZINESS [None]
  - FALL [None]
  - MUSCULAR WEAKNESS [None]
